FAERS Safety Report 14642847 (Version 2)
Quarter: 2018Q4

REPORT INFORMATION
  Report Type: Report from Study
  Country: JP (occurrence: JP)
  Receive Date: 20180315
  Receipt Date: 20181230
  Transmission Date: 20190204
  Serious: No
  Sender: FDA-Public Use
  Company Number: JP-B.I. PHARMACEUTICALS,INC./RIDGEFIELD-2018-NB-001244

PATIENT
  Age: 43 Year
  Sex: Female
  Weight: 74.9 kg

DRUGS (7)
  1. METFORMIN HYDROCHLORIDE. [Concomitant]
     Active Substance: METFORMIN HYDROCHLORIDE
     Route: 048
     Dates: start: 20170130, end: 20170529
  2. EMPAGLIFLOZIN [Suspect]
     Active Substance: EMPAGLIFLOZIN
     Route: 048
     Dates: start: 20170829
  3. METFORMIN HYDROCHLORIDE. [Concomitant]
     Active Substance: METFORMIN HYDROCHLORIDE
     Indication: TYPE 2 DIABETES MELLITUS
     Route: 048
     Dates: end: 20170129
  4. EMPAGLIFLOZIN [Suspect]
     Active Substance: EMPAGLIFLOZIN
     Indication: TYPE 2 DIABETES MELLITUS
     Route: 048
     Dates: start: 20161126, end: 20170828
  5. ZAFATEK [Concomitant]
     Active Substance: TRELAGLIPTIN SUCCINATE
     Indication: TYPE 2 DIABETES MELLITUS
     Route: 048
  6. METFORMIN HYDROCHLORIDE. [Concomitant]
     Active Substance: METFORMIN HYDROCHLORIDE
     Route: 048
     Dates: start: 20170530
  7. GLIMICRON [Concomitant]
     Active Substance: GLICLAZIDE
     Indication: TYPE 2 DIABETES MELLITUS
     Route: 048
     Dates: start: 20180528, end: 20180824

REACTIONS (5)
  - Uterine leiomyoma [Not Recovered/Not Resolved]
  - Urine ketone body present [Recovered/Resolved]
  - Nasopharyngitis [Recovered/Resolved]
  - Iron deficiency anaemia [Recovered/Resolved]
  - Lipids abnormal [Not Recovered/Not Resolved]

NARRATIVE: CASE EVENT DATE: 20170316
